FAERS Safety Report 7155063-X (Version None)
Quarter: 2010Q4

REPORT INFORMATION
  Report Type: 
  Country: None (occurrence: None)
  Receive Date: 20101214
  Receipt Date: 20100318
  Transmission Date: 20110411
  Serious: No
  Sender: FDA-Public Use
  Company Number: US-AMGEN-COG346900

PATIENT

DRUGS (2)
  1. ENBREL [Suspect]
     Indication: RHEUMATOID ARTHRITIS
     Dosage: 50 MG, QWK
     Route: 058
     Dates: start: 20090430
  2. METHOTREXATE [Suspect]
     Dosage: 25 MG, QWK
     Route: 048

REACTIONS (7)
  - DIARRHOEA [None]
  - INJECTION SITE HAEMATOMA [None]
  - INJECTION SITE HAEMORRHAGE [None]
  - MUSCLE STRAIN [None]
  - NAUSEA [None]
  - PHOBIA [None]
  - VOMITING [None]
